FAERS Safety Report 9732847 (Version 2)
Quarter: 2014Q1

REPORT INFORMATION
  Report Type: Spontaneous
  Country: US (occurrence: US)
  Receive Date: 20131205
  Receipt Date: 20140220
  Transmission Date: 20141002
  Serious: Yes (Death)
  Sender: FDA-Public Use
  Company Number: US-BRISTOL-MYERS SQUIBB COMPANY-19867340

PATIENT
  Age: 64 Year
  Sex: Male
  Weight: 100.04 kg

DRUGS (12)
  1. BYETTA [Suspect]
     Indication: TYPE 2 DIABETES MELLITUS
     Dosage: LAST DOSE ON DEC10
     Dates: start: 20090331, end: 201012
  2. ABRAXANE [Concomitant]
  3. XELODA [Concomitant]
  4. GLUCOTROL [Concomitant]
  5. LEVEMIR [Concomitant]
     Dosage: LEVEMIR FLEXLPEN 1 OOUNLTI/ML IINJ SQ AT B EDTIE
     Route: 058
  6. METFORMIN HCL [Concomitant]
  7. MULTIVITAMINS [Concomitant]
     Dosage: TABS
  8. VITAMIN C [Concomitant]
  9. COMPAZINE [Concomitant]
     Indication: NAUSEA
     Dosage: PRN
  10. OPIUM TINCTURE [Concomitant]
     Dosage: PRN
  11. ZOFRAN [Concomitant]
     Dosage: PRN
  12. PREDNISONE [Concomitant]

REACTIONS (1)
  - Pancreatic carcinoma [Fatal]
